FAERS Safety Report 20727417 (Version 1)
Quarter: 2022Q2

REPORT INFORMATION
  Report Type: Spontaneous
  Country: US (occurrence: None)
  Receive Date: 20220419
  Receipt Date: 20220419
  Transmission Date: 20220721
  Serious: Yes (Other)
  Sender: FDA-Public Use
  Company Number: US-ROCHE-2803912

PATIENT
  Sex: Female

DRUGS (1)
  1. AVASTIN [Suspect]
     Active Substance: BEVACIZUMAB
     Indication: Cervix carcinoma
     Dosage: STRENGTH: 25 MG/ML, SDV (16 ML/VIAL)
     Route: 042
     Dates: start: 20210304, end: 20210325

REACTIONS (1)
  - Myocardial infarction [Unknown]
